FAERS Safety Report 23769881 (Version 1)
Quarter: 2024Q2

REPORT INFORMATION
  Report Type: Spontaneous
  Country: US (occurrence: None)
  Receive Date: 20240421
  Receipt Date: 20240421
  Transmission Date: 20240716
  Serious: No
  Sender: FDA-Public Use
  Company Number: None

PATIENT
  Age: 55 Year
  Sex: Female
  Weight: 133.2 kg

DRUGS (7)
  1. OTEZLA [Suspect]
     Active Substance: APREMILAST
     Indication: Psoriasis
     Dates: start: 20240417, end: 20240420
  2. DILTIAZEM [Concomitant]
     Active Substance: DILTIAZEM
  3. LEVOTHYROZINE [Concomitant]
  4. XANAX [Concomitant]
     Active Substance: ALPRAZOLAM
  5. METFORMIN [Concomitant]
     Active Substance: METFORMIN HYDROCHLORIDE
  6. VITAMIN D [Concomitant]
     Active Substance: VITAMIN D NOS
  7. VITAMIN B12 [Concomitant]
     Active Substance: CYANOCOBALAMIN

REACTIONS (1)
  - Gastritis [None]

NARRATIVE: CASE EVENT DATE: 20240420
